FAERS Safety Report 7422775-X (Version None)
Quarter: 2011Q2

REPORT INFORMATION
  Report Type: 
  Country: None (occurrence: None)
  Receive Date: 20110414
  Receipt Date: 20110414
  Transmission Date: 20111010
  Serious: No
  Sender: FDA-Public Use
  Company Number: None

PATIENT
  Sex: Female
  Weight: 58.514 kg

DRUGS (2)
  1. SLEEPWARE BIOELEMENTS [Suspect]
     Indication: SKIN WRINKLING
     Dosage: SMALL AMT 2X DAY
     Dates: start: 20110222
  2. SLEEPWARE BIOELEMENTS [Suspect]
     Indication: SKIN WRINKLING
     Dosage: SMALL AMT 2X DAY
     Dates: start: 20110301

REACTIONS (1)
  - RASH [None]
